FAERS Safety Report 5636741-8 (Version None)
Quarter: 2008Q1

REPORT INFORMATION
  Report Type: 
  Country: None (occurrence: None)
  Receive Date: 20080219
  Receipt Date: 20080219
  Transmission Date: 20080703
  Serious: Yes (Other)
  Sender: FDA-Public Use
  Company Number: None

PATIENT
  Age: 37 Year
  Sex: Male
  Weight: 70.3075 kg

DRUGS (2)
  1. ELAVIL [Suspect]
     Indication: SLEEP DISORDER
     Dosage: 10-20MG  NIGHTLY PO
     Route: 048
     Dates: start: 20071210, end: 20080210
  2. VALIUM [Concomitant]

REACTIONS (5)
  - IMPAIRED WORK ABILITY [None]
  - INFLUENZA LIKE ILLNESS [None]
  - MENTAL DISORDER [None]
  - MENTAL IMPAIRMENT [None]
  - WITHDRAWAL SYNDROME [None]
